FAERS Safety Report 10026809 (Version 2)
Quarter: 2014Q1

REPORT INFORMATION
  Report Type: Spontaneous
  Country: ES (occurrence: ES)
  Receive Date: 20140321
  Receipt Date: 20140321
  Transmission Date: 20141002
  Serious: Yes (Other)
  Sender: FDA-Public Use
  Company Number: ES-SHIRE-ALL1-2014-01160

PATIENT
  Age: 70 Year
  Sex: Female
  Weight: 70 kg

DRUGS (3)
  1. FOSRENOL [Suspect]
     Indication: HYPERPHOSPHATAEMIA
     Dosage: 1000 MG, 1X/DAY:QD (AT LUNCH)
     Route: 048
     Dates: start: 201401
  2. FOSRENOL [Suspect]
     Indication: RENAL FAILURE CHRONIC
  3. SINTROM [Concomitant]
     Indication: ANTICOAGULANT THERAPY
     Dosage: UNK, UNKNOWN
     Route: 048

REACTIONS (1)
  - Drug interaction [Not Recovered/Not Resolved]
